FAERS Safety Report 6483607-X (Version None)
Quarter: 2009Q4

REPORT INFORMATION
  Report Type: 
  Country: None (occurrence: None)
  Receive Date: 20091209
  Receipt Date: 20091130
  Transmission Date: 20100525
  Serious: Yes (Other)
  Sender: FDA-Public Use
  Company Number: GXKR2009KR12979

PATIENT
  Age: 63 Year
  Sex: Male
  Weight: 73 kg

DRUGS (5)
  1. RIBAVIRIN (NGX) [Suspect]
     Indication: HEPATITIS C
     Dosage: 500 MG, BID
     Route: 065
  2. RIBAVIRIN (NGX) [Suspect]
     Dosage: 400 MG, BID
     Route: 065
  3. PEG-INTRON [Suspect]
     Indication: HEPATITIS C
     Dosage: 100 UG/WEEK
     Route: 065
  4. PEG-INTRON [Suspect]
     Dosage: 80 UG/WEEK
     Route: 065
  5. PEG-INTRON [Suspect]
     Dosage: 50 UG/WEEK
     Route: 065

REACTIONS (12)
  - ASTHENIA [None]
  - DIPLOPIA [None]
  - DIZZINESS [None]
  - EPISTAXIS [None]
  - EYE MOVEMENT DISORDER [None]
  - EYELID PTOSIS [None]
  - HETEROPHORIA [None]
  - OCULAR MYASTHENIA [None]
  - PLATELET COUNT DECREASED [None]
  - PYREXIA [None]
  - RASH PRURITIC [None]
  - STRABISMUS [None]
